FAERS Safety Report 9901651 (Version 1)
Quarter: 2014Q1

REPORT INFORMATION
  Report Type: Spontaneous
  Country: BR (occurrence: BR)
  Receive Date: 20140217
  Receipt Date: 20140217
  Transmission Date: 20141002
  Serious: Yes (Death, Other)
  Sender: FDA-Public Use
  Company Number: PHHY2014BR018424

PATIENT
  Age: 51 Year
  Sex: Female

DRUGS (7)
  1. EVEROLIMUS [Suspect]
     Indication: BREAST CANCER
     Dosage: UNK
  2. GEMCITABINE [Concomitant]
  3. VINORELBINE [Concomitant]
  4. RADIOTHERAPY [Concomitant]
     Indication: METASTASES TO BONE
  5. DOXORUBICIN [Concomitant]
     Indication: METASTASES TO BONE
     Dosage: 35 MG/M2, UNK
     Dates: start: 201207, end: 201210
  6. CARBOPLATIN [Concomitant]
     Indication: METASTASES TO PERITONEUM
  7. PACLITAXEL [Concomitant]
     Indication: METASTASES TO PERITONEUM

REACTIONS (6)
  - Death [Fatal]
  - Malignant neoplasm progression [Unknown]
  - Metastases to meninges [Unknown]
  - Metastases to peritoneum [Unknown]
  - Metastases to eye [Unknown]
  - Metastases to bone [Unknown]
